FAERS Safety Report 5401615-4 (Version None)
Quarter: 2007Q3

REPORT INFORMATION
  Report Type: 
  Country: None (occurrence: None)
  Receive Date: 20070718
  Receipt Date: 20060901
  Transmission Date: 20080115
  Serious: Yes (Hospitalization)
  Sender: FDA-Public Use
  Company Number: 2006109955

PATIENT
  Age: 39 Year
  Sex: Female

DRUGS (2)
  1. CELEBREX [Suspect]
     Indication: INFLAMMATION
     Dosage: (200 MG, ) ORAL
     Route: 048
     Dates: start: 20030601
  2. CELEBREX [Suspect]
     Indication: NECK PAIN
     Dosage: (200 MG, ) ORAL
     Route: 048
     Dates: start: 20030601

REACTIONS (1)
  - DEEP VEIN THROMBOSIS [None]
